FAERS Safety Report 9682065 (Version 2)
Quarter: 2013Q4

REPORT INFORMATION
  Report Type: Report from Study
  Country: PH (occurrence: PH)
  Receive Date: 20131111
  Receipt Date: 20131120
  Transmission Date: 20140711
  Serious: Yes (Death, Hospitalization)
  Sender: FDA-Public Use
  Company Number: PH-BAXTER-2013BAX043808

PATIENT
  Sex: Male

DRUGS (2)
  1. DIANEAL PD2 WITH 1.5% DEXTROSE [Suspect]
     Indication: RENAL FAILURE CHRONIC
     Route: 033
     Dates: start: 201303
  2. DIANEAL PD2 WITH 1.5% DEXTROSE [Suspect]
     Indication: PERITONEAL DIALYSIS

REACTIONS (6)
  - Sepsis [Fatal]
  - Metabolic encephalopathy [Fatal]
  - Circulatory collapse [Fatal]
  - Encephalopathy [Fatal]
  - Brain death [Fatal]
  - Convulsion [Unknown]
